FAERS Safety Report 23063763 (Version 1)
Quarter: 2023Q4

REPORT INFORMATION
  Report Type: Spontaneous
  Country: US (occurrence: US)
  Receive Date: 20231013
  Receipt Date: 20231013
  Transmission Date: 20240109
  Serious: No
  Sender: FDA-Public Use
  Company Number: US-NOVEN PHARMACEUTICALS, INC.-2023-NOV-US001036

PATIENT
  Age: 45 Year
  Sex: Female
  Weight: 64 kg

DRUGS (2)
  1. XELSTRYM [Suspect]
     Active Substance: DEXTROAMPHETAMINE
     Indication: Attention deficit hyperactivity disorder
     Dosage: 9 MG, UNK
     Route: 062
     Dates: start: 20230908
  2. XELSTRYM [Suspect]
     Active Substance: DEXTROAMPHETAMINE
     Indication: Depression

REACTIONS (2)
  - Therapeutic product ineffective [Unknown]
  - Device use issue [Not Recovered/Not Resolved]

NARRATIVE: CASE EVENT DATE: 20230901
